FAERS Safety Report 22286971 (Version 3)
Quarter: 2023Q2

REPORT INFORMATION
  Report Type: Spontaneous
  Country: US (occurrence: US)
  Receive Date: 20230505
  Receipt Date: 20230518
  Transmission Date: 20230722
  Serious: Yes (Other)
  Sender: FDA-Public Use
  Company Number: US-BIOVITRUM-2023-US-010087

PATIENT
  Age: 2 Year
  Sex: Male

DRUGS (1)
  1. SYNAGIS [Suspect]
     Active Substance: PALIVIZUMAB
     Indication: Product used for unknown indication
     Dosage: EVERY 28 DAYS
     Route: 058
     Dates: start: 202110

REACTIONS (7)
  - Off label use [Unknown]
  - Unevaluable event [Unknown]
  - Respiratory rate increased [Unknown]
  - Dependence on oxygen therapy [Unknown]
  - Dyspnoea [Unknown]
  - Oxygen saturation increased [Unknown]
  - Anaphylactic shock [Unknown]

NARRATIVE: CASE EVENT DATE: 20230308
